FAERS Safety Report 7308883-2 (Version None)
Quarter: 2011Q1

REPORT INFORMATION
  Report Type: 
  Country: None (occurrence: None)
  Receive Date: 20110223
  Receipt Date: 20100802
  Transmission Date: 20110831
  Serious: Yes (Other)
  Sender: FDA-Public Use
  Company Number: US-NOVOPROD-312470

PATIENT

DRUGS (5)
  1. PLATELETS [Concomitant]
  2. NOVOSEVEN [Suspect]
     Indication: POST PROCEDURAL HAEMORRHAGE
  3. RED BLOOD CELLS [Concomitant]
  4. CRYOPRECIPITATES [Concomitant]
  5. FRESH FROZEN PLASMA [Concomitant]

REACTIONS (1)
  - PORTAL VEIN THROMBOSIS [None]
